FAERS Safety Report 10613957 (Version 1)
Quarter: 2014Q4

REPORT INFORMATION
  Report Type: Report from Study
  Country: NL (occurrence: NL)
  Receive Date: 20141128
  Receipt Date: 20141128
  Transmission Date: 20150529
  Serious: Yes (Hospitalization)
  Sender: FDA-Public Use
  Company Number: NL-AMGEN-NLDSL2013094653

PATIENT
  Age: 49 Year
  Sex: Female

DRUGS (1)
  1. ARANESP [Suspect]
     Active Substance: DARBEPOETIN ALFA
     Indication: PRODUCT USED FOR UNKNOWN INDICATION
     Dosage: 1 ML (500MCG/ML), Q3WK
     Route: 065
     Dates: start: 20130225, end: 20140218

REACTIONS (7)
  - Malaise [Unknown]
  - Bacterial infection [Unknown]
  - Rash [Unknown]
  - Haemoglobin decreased [Recovering/Resolving]
  - Peroneal nerve palsy [Unknown]
  - Pallor [Unknown]
  - Asthenia [Unknown]
